FAERS Safety Report 10518322 (Version 11)
Quarter: 2015Q2

REPORT INFORMATION
  Report Type: Spontaneous
  Country: US (occurrence: US)
  Receive Date: 20141015
  Receipt Date: 20150625
  Transmission Date: 20150821
  Serious: Yes (Hospitalization)
  Sender: FDA-Public Use
  Company Number: US-SANOFI-AVENTIS-2012SA028333

PATIENT
  Age: 48 Year
  Sex: Female

DRUGS (37)
  1. PLAVIX [Suspect]
     Active Substance: CLOPIDOGREL BISULFATE
     Indication: ARTERIAL OCCLUSIVE DISEASE
     Route: 048
     Dates: start: 20070309, end: 20070309
  2. ASPIRIN. [Concomitant]
     Active Substance: ASPIRIN
     Dates: start: 201305
  3. GLUCOPHAGE [Concomitant]
     Active Substance: METFORMIN HYDROCHLORIDE
     Indication: CHEST PAIN
     Dosage: 1 TAB UNDER TONGUE EVERY 5 MINUTES.
     Route: 060
  4. PERCOCET [Concomitant]
     Active Substance: ACETAMINOPHEN\OXYCODONE HYDROCHLORIDE
  5. VOLTAREN [Concomitant]
     Active Substance: DICLOFENAC SODIUM
     Dosage: 1 % GEL
  6. METOPROLOL TARTRATE. [Concomitant]
     Active Substance: METOPROLOL TARTRATE
     Indication: CARDIAC DISORDER
     Route: 048
  7. ALBUTEROL SULFATE. [Concomitant]
     Active Substance: ALBUTEROL SULFATE
     Route: 048
  8. ASPIRIN. [Concomitant]
     Active Substance: ASPIRIN
     Dates: start: 200703, end: 201305
  9. NITROGLYCERINE [Concomitant]
     Active Substance: NITROGLYCERIN
     Dosage: FREQUENCY: AS NEEDED
  10. CIPROFLOXACIN. [Concomitant]
     Active Substance: CIPROFLOXACIN
     Dosage: DOSE: 500 (UNITS: UNSPECIFIED)
  11. CRESTOR [Concomitant]
     Active Substance: ROSUVASTATIN CALCIUM
     Route: 048
  12. SODIUM CHLORIDE. [Concomitant]
     Active Substance: SODIUM CHLORIDE
     Dosage: FREQUENCY:200  MUHR
     Route: 042
     Dates: start: 20070308
  13. PHENERGAN [Concomitant]
     Active Substance: PROMETHAZINE HYDROCHLORIDE
     Dosage: DOSE: 12.5 MG 70.5 ML  ?DOSE: Q6H PRN
     Route: 042
     Dates: start: 20070308
  14. PLAVIX [Suspect]
     Active Substance: CLOPIDOGREL BISULFATE
     Indication: ARTERIAL OCCLUSIVE DISEASE
     Route: 048
     Dates: start: 20070309, end: 20130512
  15. PLAVIX [Suspect]
     Active Substance: CLOPIDOGREL BISULFATE
     Indication: MYOCARDIAL INFARCTION
     Route: 048
     Dates: start: 20070309, end: 20130512
  16. LORTAB [Concomitant]
     Active Substance: ACETAMINOPHEN\HYDROCODONE BITARTRATE
     Dosage: Q6H PRN
     Route: 048
     Dates: start: 20070308
  17. FUROSEMIDE. [Concomitant]
     Active Substance: FUROSEMIDE
     Route: 048
  18. NAPROXEN. [Concomitant]
     Active Substance: NAPROXEN
     Route: 048
  19. CEPHALEXIN. [Concomitant]
     Active Substance: CEPHALEXIN
     Route: 048
  20. LOPRESSOR [Concomitant]
     Active Substance: METOPROLOL TARTRATE
  21. TYLENOL [Concomitant]
     Active Substance: ACETAMINOPHEN
     Dosage: Q6H PRN
     Route: 048
     Dates: start: 20070308
  22. RANITIDINE [Concomitant]
     Active Substance: RANITIDINE\RANITIDINE HYDROCHLORIDE
  23. NITROSTAT [Concomitant]
     Active Substance: NITROGLYCERIN
     Dosage: PLACE UNDER TONGUE EVERY 5 MINUTES
  24. PLAVIX [Suspect]
     Active Substance: CLOPIDOGREL BISULFATE
     Indication: MYOCARDIAL INFARCTION
     Route: 048
     Dates: start: 20070309, end: 20070309
  25. ZOCOR [Concomitant]
     Active Substance: SIMVASTATIN
  26. LASIX [Concomitant]
     Active Substance: FUROSEMIDE
     Route: 048
  27. ANUCORT-HC [Concomitant]
     Active Substance: HYDROCORTISONE ACETATE
  28. LEVOFLOXACIN. [Concomitant]
     Active Substance: LEVOFLOXACIN
     Route: 048
  29. AZITHROMYCIN [Concomitant]
     Active Substance: AZITHROMYCIN ANHYDROUS
     Dosage: TAKE 2 TABLETS AT ONCE TODAY, THEN TAKE 1 TABLET ONCE DAILY FOR 4 DAYS.
  30. LOPRESSOR [Concomitant]
     Active Substance: METOPROLOL TARTRATE
     Route: 048
     Dates: start: 20070308
  31. ZANTAC [Concomitant]
     Active Substance: RANITIDINE HYDROCHLORIDE
     Route: 048
  32. RAMIPRIL. [Concomitant]
     Active Substance: RAMIPRIL
  33. METHOCARBAMOL. [Concomitant]
     Active Substance: METHOCARBAMOL
     Route: 048
  34. GLUCOPHAGE [Concomitant]
     Active Substance: METFORMIN HYDROCHLORIDE
     Indication: CHEST PAIN
  35. ALTACE [Concomitant]
     Active Substance: RAMIPRIL
     Route: 048
  36. PRILOSEC [Concomitant]
     Active Substance: OMEPRAZOLE MAGNESIUM
  37. ZOFRAN [Concomitant]
     Active Substance: ONDANSETRON HYDROCHLORIDE
     Dosage: DOSE:4MQ/2ML ?FREQUENCY: Q6H PRN
     Route: 042
     Dates: start: 20070308

REACTIONS (3)
  - Haematuria [Recovered/Resolved]
  - Nephrolithiasis [Unknown]
  - Injury [Unknown]
